FAERS Safety Report 6319278-2 (Version None)
Quarter: 2009Q3

REPORT INFORMATION
  Report Type: 
  Country: None (occurrence: None)
  Receive Date: 20090821
  Receipt Date: 20080820
  Transmission Date: 20100115
  Serious: No
  Sender: FDA-Public Use
  Company Number: US-ABBOTT-08P-163-0471721-00

PATIENT
  Sex: Male
  Weight: 69.008 kg

DRUGS (4)
  1. NIASPAN [Suspect]
     Indication: BLOOD CHOLESTEROL INCREASED
     Dosage: 1 TABLET, DAILY
     Route: 048
     Dates: start: 20080401, end: 20080701
  2. NIASPAN [Suspect]
     Dosage: 500 MG, DAILY
     Route: 048
     Dates: start: 20080101, end: 20080401
  3. NIASPAN [Suspect]
     Dosage: 2 TABLETS, DAILY
     Dates: start: 20080701
  4. ASPIRIN [Concomitant]
     Indication: FLUSHING
     Route: 048
     Dates: start: 20080401

REACTIONS (1)
  - FLUSHING [None]
